FAERS Safety Report 5217697-9 (Version None)
Quarter: 2007Q1

REPORT INFORMATION
  Report Type: 
  Country: None (occurrence: None)
  Receive Date: 20070124
  Receipt Date: 20070111
  Transmission Date: 20070707
  Serious: Yes (Other)
  Sender: FDA-Public Use
  Company Number: US-ELI_LILLY_AND_COMPANY-US200701002260

PATIENT
  Age: 44 Year
  Sex: Female

DRUGS (4)
  1. PROZAC [Suspect]
     Indication: DEPRESSION
     Dosage: 40 MG, DAILY (1/D)
     Dates: end: 20060801
  2. LISINOPRIL [Concomitant]
     Indication: BLOOD PRESSURE
  3. SINGULAIR [Concomitant]
     Indication: ASTHMA
  4. DEPAKOTE [Concomitant]
     Indication: BIPOLAR DISORDER

REACTIONS (2)
  - IMPAIRED WORK ABILITY [None]
  - SUICIDAL IDEATION [None]
